FAERS Safety Report 18982104 (Version 2)
Quarter: 2021Q1

REPORT INFORMATION
  Report Type: Spontaneous
  Country: US (occurrence: US)
  Receive Date: 20210308
  Receipt Date: 20210312
  Transmission Date: 20210420
  Serious: Yes (Other)
  Sender: FDA-Public Use
  Company Number: US-ASTRAZENECA-2021A096232

PATIENT
  Sex: Female

DRUGS (3)
  1. BYDUREON [Suspect]
     Active Substance: EXENATIDE
     Indication: TYPE 2 DIABETES MELLITUS
     Route: 058
  2. INSULIN, PRANDIAL [Concomitant]
     Route: 065
  3. INSULIN, LONG ACTING [Concomitant]
     Route: 065

REACTIONS (10)
  - Incorrect dose administered by device [Unknown]
  - Wrong technique in device usage process [Unknown]
  - Cataract [Unknown]
  - Posture abnormal [Unknown]
  - Mobility decreased [Unknown]
  - Glaucoma [Unknown]
  - Injection site haemorrhage [Unknown]
  - Arthritis [Unknown]
  - Circumstance or information capable of leading to medication error [Unknown]
  - Needle issue [Unknown]
